FAERS Safety Report 24890428 (Version 8)
Quarter: 2025Q2

REPORT INFORMATION
  Report Type: Spontaneous
  Country: US (occurrence: US)
  Receive Date: 20250127
  Receipt Date: 20250501
  Transmission Date: 20250716
  Serious: No
  Sender: PFIZER
  Company Number: US-PFIZER INC-202500010011

PATIENT
  Age: 16 Year
  Sex: Male

DRUGS (1)
  1. GENOTROPIN [Suspect]
     Active Substance: SOMATROPIN
     Indication: Growth hormone deficiency
     Dosage: 2 MG, DAILY
     Route: 058
     Dates: start: 20240301

REACTIONS (7)
  - Device use error [Unknown]
  - Device mechanical issue [Unknown]
  - Device delivery system issue [Unknown]
  - Device deployment issue [Unknown]
  - Device information output issue [Unknown]
  - Device power source issue [Unknown]
  - Drug dose omission by device [Unknown]

NARRATIVE: CASE EVENT DATE: 20250116
